FAERS Safety Report 26052300 (Version 2)
Quarter: 2025Q4

REPORT INFORMATION
  Report Type: Spontaneous
  Country: GB (occurrence: GB)
  Receive Date: 20251117
  Receipt Date: 20251124
  Transmission Date: 20260118
  Serious: Yes (Other)
  Sender: TEVA
  Company Number: GB-TEVA-VS-3393167

PATIENT
  Age: 60 Year
  Sex: Male

DRUGS (13)
  1. DULOXETINE [Suspect]
     Active Substance: DULOXETINE
     Indication: Neuralgia
     Route: 048
  2. Nitrous oxide Oxygen [Concomitant]
     Indication: Analgesic therapy
     Route: 065
  3. ACETAMINOPHEN [Suspect]
     Active Substance: ACETAMINOPHEN
     Indication: Neuralgia
     Dosage: FOUR TIMES A DAY
     Route: 048
  4. PREGABALIN [Suspect]
     Active Substance: PREGABALIN
     Indication: Neuralgia
     Route: 065
  5. MIDAZOLAM [Suspect]
     Active Substance: MIDAZOLAM
     Indication: Neuralgia
     Route: 065
  6. OXYCODONE [Suspect]
     Active Substance: OXYCODONE
     Indication: Fracture pain
     Dosage: MODIFIED RELEASE
     Route: 048
  7. OXYCODONE [Suspect]
     Active Substance: OXYCODONE
     Indication: Fracture pain
     Dosage: IMMEDIATE RELEASE STATS
     Route: 065
  8. OXYCODONE [Suspect]
     Active Substance: OXYCODONE
     Indication: Fracture pain
     Dosage: MODIFIED RELEASE
     Route: 048
  9. FENTANYL [Suspect]
     Active Substance: FENTANYL
     Indication: Fracture pain
     Dosage: STATS
     Route: 065
  10. MORPHINE [Suspect]
     Active Substance: MORPHINE
     Indication: Fracture pain
     Dosage: 300-340 MG
     Route: 048
  11. ALFENTANIL [Suspect]
     Active Substance: ALFENTANIL
     Indication: Fracture pain
     Dosage: INFUSION
     Route: 058
  12. ALFENTANIL [Suspect]
     Active Substance: ALFENTANIL
     Indication: Fracture pain
     Dosage: INFUSION
     Route: 058
  13. ALFENTANIL [Suspect]
     Active Substance: ALFENTANIL
     Indication: Fracture pain
     Dosage: INFUSION
     Route: 058

REACTIONS (6)
  - Hallucination [Recovering/Resolving]
  - Confusional state [Recovering/Resolving]
  - Drug ineffective [Unknown]
  - Drug intolerance [Unknown]
  - Myoclonus [Recovering/Resolving]
  - Toxicity to various agents [Recovering/Resolving]
